FAERS Safety Report 4676506-7 (Version None)
Quarter: 2005Q2

REPORT INFORMATION
  Report Type: 
  Country: None (occurrence: None)
  Receive Date: 20050527
  Receipt Date: 20050512
  Transmission Date: 20051028
  Serious: Yes (Hospitalization)
  Sender: FDA-Public Use
  Company Number: CH-JNJFOC-20050503523

PATIENT
  Age: 65 Year
  Sex: Male

DRUGS (18)
  1. TRAMADOL HCL [Suspect]
     Indication: DRUG USE FOR UNKNOWN INDICATION
     Route: 049
     Dates: start: 20050217, end: 20050223
  2. DIPIPERON [Suspect]
     Indication: DRUG USE FOR UNKNOWN INDICATION
     Route: 049
     Dates: start: 20050221, end: 20050228
  3. LASIX [Suspect]
     Indication: ESSENTIAL HYPERTENSION
     Route: 049
  4. ZURCAL [Suspect]
     Indication: DRUG USE FOR UNKNOWN INDICATION
     Route: 049
  5. DAFALGAN [Suspect]
     Indication: DRUG USE FOR UNKNOWN INDICATION
     Route: 049
  6. CIPROXIN [Suspect]
     Route: 049
  7. FLAGYL [Suspect]
     Route: 049
  8. CIPRIN [Suspect]
     Dosage: 500 MILLICURIES.
     Route: 049
  9. CETIRIZINE HCL [Suspect]
     Indication: DRUG USE FOR UNKNOWN INDICATION
     Route: 049
  10. FENISTIL [Suspect]
     Indication: DRUG USE FOR UNKNOWN INDICATION
     Route: 049
  11. PASPERTIN [Suspect]
     Indication: DRUG USE FOR UNKNOWN INDICATION
     Route: 049
  12. FRAXIPARINE [Suspect]
     Indication: DRUG USE FOR UNKNOWN INDICATION
     Route: 058
  13. AVANDIA [Suspect]
     Route: 049
  14. EUTHYROX [Concomitant]
     Indication: HYPOTHYROIDISM
     Route: 049
  15. MAGNESIOCARD CITRON [Concomitant]
     Indication: DRUG USE FOR UNKNOWN INDICATION
     Route: 049
  16. TORSEMIDE [Concomitant]
     Indication: ESSENTIAL HYPERTENSION
     Route: 049
  17. NOCTAMID [Concomitant]
     Indication: DRUG USE FOR UNKNOWN INDICATION
     Route: 049
  18. GLUCOPHAGE [Concomitant]
     Route: 049

REACTIONS (2)
  - CHOLESTASIS [None]
  - JAUNDICE [None]
